FAERS Safety Report 6206457-8 (Version None)
Quarter: 2009Q2

REPORT INFORMATION
  Report Type: 
  Country: None (occurrence: None)
  Receive Date: 20090527
  Receipt Date: 20090527
  Transmission Date: 20091009
  Serious: Yes (Other)
  Sender: FDA-Public Use
  Company Number: None

PATIENT
  Age: 42 Year
  Sex: Female
  Weight: 63.05 kg

DRUGS (3)
  1. HEALTHY DEFENSE DAILY MOISTURIZE UNTINTED SPF 45 NEUTROGENA [Suspect]
     Indication: THERAPEUTIC SKIN CARE TOPICAL
     Dosage: AS DIRECTED 2 XS A DAY
     Dates: start: 20090521, end: 20090524
  2. BENIDRYL [Concomitant]
  3. HYDROCORTIZONE [Concomitant]

REACTIONS (4)
  - PRURITUS [None]
  - RASH [None]
  - SKIN EXFOLIATION [None]
  - SKIN IRRITATION [None]
